FAERS Safety Report 18391675 (Version 1)
Quarter: 2020Q4

REPORT INFORMATION
  Report Type: Spontaneous
  Country: CA (occurrence: CA)
  Receive Date: 20201016
  Receipt Date: 20201016
  Transmission Date: 20210114
  Serious: Yes (Other)
  Sender: FDA-Public Use
  Company Number: CA-ACCORD-205108

PATIENT
  Age: 54 Year
  Sex: Female

DRUGS (2)
  1. DOCETAXEL. [Suspect]
     Active Substance: DOCETAXEL
     Indication: UTERINE CANCER
     Dosage: (1.7 ML)
     Route: 042
  2. GEMCITABINE. [Concomitant]
     Active Substance: GEMCITABINE
     Indication: UTERINE CANCER
     Dosage: ON DAY ONE
     Route: 042

REACTIONS (8)
  - Neutropenia [Unknown]
  - Feeling hot [Recovered/Resolved]
  - Dermatitis bullous [Recovered/Resolved with Sequelae]
  - Flushing [Recovered/Resolved]
  - Urticaria [Recovered/Resolved]
  - Chest discomfort [Recovered/Resolved]
  - Dyspnoea exertional [Recovered/Resolved]
  - Erythema [Recovered/Resolved]
